FAERS Safety Report 15322882 (Version 1)
Quarter: 2018Q3

REPORT INFORMATION
  Report Type: Spontaneous
  Country: NL (occurrence: NL)
  Receive Date: 20180827
  Receipt Date: 20180827
  Transmission Date: 20181010
  Serious: Yes (Other)
  Sender: FDA-Public Use
  Company Number: NL-PFIZER INC-2018333620

PATIENT
  Sex: Female
  Weight: 54 kg

DRUGS (3)
  1. CANDESARTAN CILEXETIL. [Concomitant]
     Active Substance: CANDESARTAN CILEXETIL
     Dosage: UNK
  2. AMLODIPINE BESILATE [Suspect]
     Active Substance: AMLODIPINE BESYLATE
     Indication: HYPERTENSION
     Dosage: 5 MG, 1X/DAY
     Route: 050
     Dates: start: 20180525, end: 20180706
  3. CALCI CHEW D3 [Concomitant]
     Active Substance: CALCIUM CARBONATE\CHOLECALCIFEROL
     Dosage: UNK
     Route: 048

REACTIONS (5)
  - Dry eye [Unknown]
  - Migraine with aura [Unknown]
  - Nystagmus [Unknown]
  - Visual impairment [Unknown]
  - Asthenopia [Unknown]

NARRATIVE: CASE EVENT DATE: 2018
